FAERS Safety Report 9222551 (Version 2)
Quarter: 2013Q2

REPORT INFORMATION
  Report Type: Report from Study
  Country: BE (occurrence: BE)
  Receive Date: 20130410
  Receipt Date: 20130415
  Transmission Date: 20140414
  Serious: Yes (Hospitalization)
  Sender: FDA-Public Use
  Company Number: BE-ROCHE-1155572

PATIENT
  Age: 29 Year
  Sex: Male
  Weight: 70 kg

DRUGS (8)
  1. BEVACIZUMAB [Suspect]
     Indication: GLIOBLASTOMA MULTIFORME
     Route: 042
     Dates: start: 20121102, end: 20121102
  2. BEVACIZUMAB [Suspect]
     Route: 042
     Dates: start: 20120821, end: 20130329
  3. PANTOMED (BELGIUM) [Concomitant]
     Route: 048
     Dates: start: 20120918
  4. KEPPRA [Concomitant]
     Indication: EPILEPSY
     Route: 048
     Dates: start: 201203
  5. KEPPRA [Concomitant]
     Route: 048
  6. MEDROL [Concomitant]
     Indication: GLIOBLASTOMA MULTIFORME
     Route: 048
     Dates: start: 20120815
  7. MEDROL [Concomitant]
     Route: 048
     Dates: start: 20120815
  8. STILNOCT [Concomitant]
     Indication: INSOMNIA
     Route: 048
     Dates: start: 20120903

REACTIONS (6)
  - Abdominal pain [Recovered/Resolved]
  - Headache [Recovered/Resolved]
  - Gait disturbance [Not Recovered/Not Resolved]
  - General physical health deterioration [Not Recovered/Not Resolved]
  - Brain oedema [Not Recovered/Not Resolved]
  - Disease progression [Not Recovered/Not Resolved]
